FAERS Safety Report 9760943 (Version 1)
Quarter: 2013Q4

REPORT INFORMATION
  Report Type: Spontaneous
  Country: US (occurrence: US)
  Receive Date: 20131216
  Receipt Date: 20131216
  Transmission Date: 20140711
  Serious: Yes (Other)
  Sender: FDA-Public Use
  Company Number: US-PFIZER INC-2013357670

PATIENT
  Age: 64 Year
  Sex: Male
  Weight: 86.17 kg

DRUGS (3)
  1. NEURONTIN [Suspect]
     Indication: NEURALGIA
     Dosage: 300 MG, 2X/DAY
  2. NEURONTIN [Suspect]
     Dosage: 300 MG, 3X/DAY
  3. NEURONTIN [Suspect]
     Dosage: 300 MG, 2X/DAY
     Dates: end: 20131208

REACTIONS (6)
  - Off label use [Unknown]
  - Musculoskeletal discomfort [Not Recovered/Not Resolved]
  - Hypoaesthesia [Not Recovered/Not Resolved]
  - Pain [Not Recovered/Not Resolved]
  - Insomnia [Not Recovered/Not Resolved]
  - Drug ineffective for unapproved indication [Unknown]
